FAERS Safety Report 16728507 (Version 1)
Quarter: 2019Q3

REPORT INFORMATION
  Report Type: Spontaneous
  Country: US (occurrence: US)
  Receive Date: 20190822
  Receipt Date: 20190822
  Transmission Date: 20191005
  Serious: Yes (Other)
  Sender: FDA-Public Use
  Company Number: US-009507513-1908USA006449

PATIENT
  Age: 34 Year
  Sex: Female
  Weight: 82.54 kg

DRUGS (1)
  1. NEXPLANON [Suspect]
     Active Substance: ETONOGESTREL
     Indication: CONTRACEPTION
     Dosage: IMPLANT
     Route: 059
     Dates: start: 20190702, end: 20190812

REACTIONS (6)
  - Complication associated with device [Recovered/Resolved]
  - Limb discomfort [Unknown]
  - Implant site pain [Unknown]
  - Implant site fibrosis [Unknown]
  - Device dislocation [Recovered/Resolved]
  - Implant site paraesthesia [Unknown]

NARRATIVE: CASE EVENT DATE: 2019
